FAERS Safety Report 8933795 (Version 2)
Quarter: 2012Q4

REPORT INFORMATION
  Report Type: Report from Study
  Country: US (occurrence: US)
  Receive Date: 20121129
  Receipt Date: 20121203
  Transmission Date: 20130627
  Serious: Yes (Other)
  Sender: FDA-Public Use
  Company Number: US-NAPPMUNDI-USA-2012-0096205

PATIENT
  Sex: Female

DRUGS (2)
  1. OXYCONTIN (NDA 22-272) [Suspect]
     Indication: PAIN
     Dosage: 2 tablet, daily
  2. WELLBUTRIN [Concomitant]

REACTIONS (9)
  - Fracture [Unknown]
  - Fall [Unknown]
  - Pain [Unknown]
  - Drug effect decreased [Unknown]
  - Weight increased [Unknown]
  - Depression [Unknown]
  - Asthenia [Unknown]
  - Arthralgia [Unknown]
  - Musculoskeletal pain [Unknown]
